FAERS Safety Report 7852799-X (Version None)
Quarter: 2011Q4

REPORT INFORMATION
  Report Type: 
  Country: None (occurrence: None)
  Receive Date: 20111026
  Receipt Date: 20111014
  Transmission Date: 20120403
  Serious: Yes (Hospitalization, Other)
  Sender: FDA-Public Use
  Company Number: ES-JNJFOC-20111008382

PATIENT
  Age: 70 Year
  Sex: Male

DRUGS (10)
  1. SUNITINIB MALATE [Concomitant]
     Indication: PRODUCT USED FOR UNKNOWN INDICATION
     Route: 065
  2. DEXAMETHASONE [Suspect]
     Indication: PRODUCT USED FOR UNKNOWN INDICATION
     Route: 065
     Dates: start: 20110801
  3. NAPROXEN [Concomitant]
     Indication: PRODUCT USED FOR UNKNOWN INDICATION
     Route: 065
  4. EVEROLIMUS [Concomitant]
     Indication: RENAL CELL CARCINOMA
     Route: 065
  5. FENTANYL-100 [Suspect]
     Indication: CANCER PAIN
     Route: 062
  6. FENTANYL-100 [Suspect]
     Route: 062
     Dates: start: 20110301, end: 20110701
  7. FENTANYL-100 [Suspect]
     Route: 062
     Dates: start: 20110701
  8. PREGABALIN [Concomitant]
     Indication: CANCER PAIN
     Route: 065
     Dates: start: 20110701
  9. MEGESTROL ACETATE [Concomitant]
     Indication: PRODUCT USED FOR UNKNOWN INDICATION
     Route: 065
     Dates: start: 20111001
  10. METAMIZOL [Concomitant]
     Indication: PRODUCT USED FOR UNKNOWN INDICATION
     Route: 065

REACTIONS (6)
  - INADEQUATE ANALGESIA [None]
  - NEOPLASM MALIGNANT [None]
  - SOMNOLENCE [None]
  - HYPERCALCAEMIA [None]
  - CONSTIPATION [None]
  - DECREASED APPETITE [None]
